FAERS Safety Report 11681406 (Version 1)
Quarter: 2015Q4

REPORT INFORMATION
  Report Type: Spontaneous
  Country: US (occurrence: None)
  Receive Date: 20151028
  Receipt Date: 20151028
  Transmission Date: 20160304
  Serious: Yes (Life-Threatening, Disabling)
  Sender: FDA-Public Use
  Company Number: None

PATIENT
  Age: 71 Year
  Sex: Female
  Weight: 118.39 kg

DRUGS (14)
  1. ASPIRIN. [Concomitant]
     Active Substance: ASPIRIN
  2. LANTUS-SLIDING SCALE [Concomitant]
  3. BESYKATE [Concomitant]
  4. NOVOLOG [Concomitant]
     Active Substance: INSULIN ASPART
  5. CALAITROL [Concomitant]
  6. ATORVASTATIN [Concomitant]
     Active Substance: ATORVASTATIN
  7. LEVOTHYROXINE. [Concomitant]
     Active Substance: LEVOTHYROXINE
  8. COCHLEAN IMPLANT [Concomitant]
  9. LOSARTAN. [Concomitant]
     Active Substance: LOSARTAN
  10. CARVEDIOL [Concomitant]
     Active Substance: CARVEDILOL
  11. DULOXETINE. [Suspect]
     Active Substance: DULOXETINE
     Indication: PAIN
     Dosage: 1ST WEEK 30MG REST OF TIME: 60MG?2 PILLS?1 A DAY?BY MOUTH
     Route: 048
     Dates: start: 20150819, end: 20150923
  12. EXLAX [Concomitant]
  13. HYDOCHOROTHIAZIDE [Concomitant]
  14. AMLADIPINE [Concomitant]

REACTIONS (2)
  - Blood glucose increased [None]
  - Paraesthesia [None]

NARRATIVE: CASE EVENT DATE: 20150823
